FAERS Safety Report 22221355 (Version 3)
Quarter: 2024Q2

REPORT INFORMATION
  Report Type: Spontaneous
  Country: US (occurrence: US)
  Receive Date: 20230418
  Receipt Date: 20240504
  Transmission Date: 20240716
  Serious: Yes (Other)
  Sender: FDA-Public Use
  Company Number: US-TEVA-2023-US-2875840

PATIENT
  Age: 30 Year
  Sex: Male

DRUGS (2)
  1. FLUOXETINE [Suspect]
     Active Substance: FLUOXETINE HYDROCHLORIDE
     Indication: Migraine
     Dosage: DOSAGE TEXT: 10 MILLIGRAM
     Route: 048
     Dates: start: 201708
  2. FLUOXETINE [Suspect]
     Active Substance: FLUOXETINE HYDROCHLORIDE
     Indication: Product used for unknown indication
     Route: 065

REACTIONS (13)
  - Cerebral disorder [Unknown]
  - Substance-induced psychotic disorder [Recovering/Resolving]
  - Post-traumatic stress disorder [Unknown]
  - Product use in unapproved indication [Unknown]
  - Feeding disorder [Unknown]
  - Nightmare [Unknown]
  - Mental fatigue [Not Recovered/Not Resolved]
  - Confusional state [Unknown]
  - Disorientation [Unknown]
  - Derealisation [Unknown]
  - Abdominal discomfort [Unknown]
  - Insomnia [Unknown]
  - Weight decreased [Unknown]

NARRATIVE: CASE EVENT DATE: 20170101
